FAERS Safety Report 16300459 (Version 1)
Quarter: 2019Q2

REPORT INFORMATION
  Report Type: Spontaneous
  Country: IT (occurrence: IT)
  Receive Date: 20190510
  Receipt Date: 20190510
  Transmission Date: 20190711
  Serious: Yes (Hospitalization)
  Sender: FDA-Public Use
  Company Number: IT-PFIZER INC-2019197496

PATIENT
  Age: 6 Year
  Sex: Female
  Weight: 27 kg

DRUGS (6)
  1. CETIRIZINE [Concomitant]
     Active Substance: CETIRIZINE HYDROCHLORIDE
     Dosage: 13 GTT, 1X/DAY
     Route: 048
     Dates: start: 20190401, end: 20190402
  2. GLAZIDIM [Suspect]
     Active Substance: CEFTAZIDIME
     Indication: INFECTION
     Dosage: 2550 MG, 1X/DAY
     Route: 042
     Dates: start: 20190401, end: 20190402
  3. BB-K8 [Concomitant]
     Active Substance: AMIKACIN SULFATE
     Dosage: 400 MG, 1X/DAY
     Route: 042
     Dates: start: 20190402, end: 20190403
  4. MERREM [Suspect]
     Active Substance: MEROPENEM
     Indication: INFECTION
     Dosage: 250 MG, TOTAL
     Route: 042
     Dates: start: 20190403, end: 20190403
  5. UNASYN [Suspect]
     Active Substance: AMPICILLIN SODIUM\SULBACTAM SODIUM
     Indication: INFECTION
     Dosage: 3900 MG, 1X/DAY
     Route: 042
     Dates: start: 20190402, end: 20190403
  6. TACHIPIRINA [Concomitant]
     Active Substance: ACETAMINOPHEN
     Indication: PYREXIA
     Dosage: 16 ML, TOTAL
     Route: 048
     Dates: start: 20190401, end: 20190401

REACTIONS (2)
  - Dyspnoea [Recovered/Resolved]
  - Cough [Recovered/Resolved]

NARRATIVE: CASE EVENT DATE: 20190403
